FAERS Safety Report 12242153 (Version 2)
Quarter: 2016Q2

REPORT INFORMATION
  Report Type: Spontaneous
  Country: FR (occurrence: FR)
  Receive Date: 20160406
  Receipt Date: 20160407
  Transmission Date: 20160815
  Serious: Yes (Hospitalization)
  Sender: FDA-Public Use
  Company Number: FR-PFIZER INC-2016185627

PATIENT
  Age: 25 Year
  Sex: Male

DRUGS (9)
  1. LAROXYL [Suspect]
     Active Substance: AMITRIPTYLINE
     Dosage: 30 GTT, 1X/DAY, AT BEDTIME
     Route: 048
     Dates: start: 20151207, end: 20160118
  2. HEXASPRAY [Suspect]
     Active Substance: BICLOTYMOL
     Indication: TONSILLITIS
     Dosage: UNK
     Route: 049
     Dates: start: 20160108, end: 20160111
  3. LOSARTAN. [Concomitant]
     Active Substance: LOSARTAN
     Dosage: 50 MG, 1X/DAY
  4. ZAMUDOL [Concomitant]
     Active Substance: TRAMADOL HYDROCHLORIDE
     Dosage: 100 MG, 2X/DAY
  5. LYRICA [Suspect]
     Active Substance: PREGABALIN
     Dosage: 125 MG, 2X/DAY
     Route: 048
     Dates: start: 20151207, end: 20160118
  6. CARBAMAZEPIN [Suspect]
     Active Substance: CARBAMAZEPINE
     Dosage: 200 MG, 1X/DAY
     Route: 048
     Dates: start: 20151207, end: 20160118
  7. ACTISKENAN [Suspect]
     Active Substance: MORPHINE SULFATE
     Dosage: 5 MG, 3X/DAY
     Route: 048
     Dates: start: 20151207, end: 20160118
  8. AMLOR [Concomitant]
     Active Substance: AMLODIPINE BESYLATE
     Dosage: 10 MG, 1X/DAY
  9. ALDACTAZINE [Concomitant]
     Active Substance: ALTHIAZIDE\SPIRONOLACTONE
     Dosage: 1 DF, 1X/DAY

REACTIONS (1)
  - Drug reaction with eosinophilia and systemic symptoms [Recovered/Resolved]

NARRATIVE: CASE EVENT DATE: 20160111
